FAERS Safety Report 12457610 (Version 3)
Quarter: 2016Q2

REPORT INFORMATION
  Report Type: Report from Study
  Country: CA (occurrence: CA)
  Receive Date: 20160610
  Receipt Date: 20160629
  Transmission Date: 20160815
  Serious: Yes (Hospitalization, Other)
  Sender: FDA-Public Use
  Company Number: CA-TAKEDA-2016TUS008652

PATIENT
  Age: 44 Year
  Sex: Female

DRUGS (7)
  1. IRON [Concomitant]
     Active Substance: IRON
     Dosage: UNK
  2. SALOFALK                           /00000301/ [Concomitant]
     Active Substance: MESALAMINE
     Dosage: 800 MG, QD
  3. PROBIOTICS [Concomitant]
     Active Substance: PROBIOTICS NOS
     Dosage: UNK
  4. CALCIUM [Concomitant]
     Active Substance: CALCIUM
     Dosage: UNK
  5. VEDOLIZUMAB [Suspect]
     Active Substance: VEDOLIZUMAB
     Indication: COLITIS ULCERATIVE
     Dosage: 300 MG, UNK
     Route: 042
     Dates: start: 20160504
  6. VITAMIN D [Concomitant]
     Active Substance: CHOLECALCIFEROL
     Dosage: UNK
  7. PREDNISONE. [Suspect]
     Active Substance: PREDNISONE
     Indication: PRODUCT USED FOR UNKNOWN INDICATION
     Dosage: 50 MG, QD
     Route: 065

REACTIONS (17)
  - Haemorrhoids [Unknown]
  - Chest pain [Recovering/Resolving]
  - Cytomegalovirus colitis [Recovering/Resolving]
  - Feeding disorder [Unknown]
  - Insomnia [Unknown]
  - Colitis ulcerative [Not Recovered/Not Resolved]
  - Mucous stools [Unknown]
  - Dizziness [Unknown]
  - Hypoaesthesia [Recovering/Resolving]
  - Asthenia [Unknown]
  - Feeling abnormal [Unknown]
  - Haematochezia [Unknown]
  - Anxiety [Unknown]
  - Drug ineffective [Unknown]
  - Back pain [Recovering/Resolving]
  - Palpitations [Recovering/Resolving]
  - Arthralgia [Recovering/Resolving]

NARRATIVE: CASE EVENT DATE: 201605
